FAERS Safety Report 16903871 (Version 1)
Quarter: 2019Q4

REPORT INFORMATION
  Report Type: Spontaneous
  Country: SG (occurrence: SG)
  Receive Date: 20191010
  Receipt Date: 20191010
  Transmission Date: 20200122
  Serious: Yes (Other)
  Sender: FDA-Public Use
  Company Number: SG-SA-2019SA275886

PATIENT
  Age: 64 Year
  Sex: Female

DRUGS (1)
  1. LEFLUNOMIDE. [Suspect]
     Active Substance: LEFLUNOMIDE
     Dosage: UNK

REACTIONS (1)
  - Hepatitis [Unknown]

NARRATIVE: CASE EVENT DATE: 20190425
